FAERS Safety Report 9555620 (Version 1)
Quarter: 2013Q3

REPORT INFORMATION
  Report Type: Report from Study
  Country: US (occurrence: US)
  Receive Date: 20130926
  Receipt Date: 20130926
  Transmission Date: 20140515
  Serious: Yes (Other)
  Sender: FDA-Public Use
  Company Number: PHEH2013US019787

PATIENT
  Sex: Female

DRUGS (3)
  1. GLEEVEC [Suspect]
     Indication: CHRONIC MYELOID LEUKAEMIA
     Dosage: 300 MG, BID (2 TIMES DAILY)
     Dates: start: 200911, end: 201211
  2. GLEEVEC [Suspect]
     Dosage: 600 MG, (300 MG BID)
  3. GLEEVEC [Suspect]
     Dosage: 600 MG, BID
     Dates: start: 200411

REACTIONS (13)
  - Foot fracture [Unknown]
  - Limb discomfort [Unknown]
  - Cognitive disorder [Recovering/Resolving]
  - Impaired healing [Unknown]
  - Mental impairment [Unknown]
  - Pain [Unknown]
  - Dyspepsia [Recovering/Resolving]
  - Nausea [Unknown]
  - Weight increased [Unknown]
  - Swelling [Unknown]
  - Dizziness [Unknown]
  - Prescribed overdose [Unknown]
  - Pain in extremity [Unknown]
